FAERS Safety Report 5157974-3 (Version None)
Quarter: 2006Q4

REPORT INFORMATION
  Report Type: 
  Country: None (occurrence: None)
  Receive Date: 20061127
  Receipt Date: 20061121
  Transmission Date: 20070319
  Serious: Yes (Death, Hospitalization)
  Sender: FDA-Public Use
  Company Number: TR-ROXANE LABORATORIES, INC-2006-BP-13607RO

PATIENT
  Age: 0 Day
  Sex: Female
  Weight: 1.9 kg

DRUGS (2)
  1. NAPROXEN [Suspect]
     Dosage: MOTHER TOOK 1100 MG/DAY DURING SECOND TRIMESTER
  2. FLUCONAZOLE [Suspect]
     Indication: CANDIDIASIS

REACTIONS (18)
  - ABDOMINAL DISTENSION [None]
  - ANURIA [None]
  - CAESAREAN SECTION [None]
  - CANDIDA SEPSIS [None]
  - CANDIDIASIS [None]
  - DISSEMINATED INTRAVASCULAR COAGULATION [None]
  - DRUG INEFFECTIVE [None]
  - FUNGAL PERITONITIS [None]
  - GENERALISED OEDEMA [None]
  - ILEITIS [None]
  - INTESTINAL PERFORATION [None]
  - JOINT CONTRACTURE [None]
  - OLIGOHYDRAMNIOS [None]
  - RENAL TUBULAR DISORDER [None]
  - SEPSIS [None]
  - SEPSIS NEONATAL [None]
  - URINE OUTPUT DECREASED [None]
  - VOMITING [None]
